FAERS Safety Report 24099258 (Version 1)
Quarter: 2024Q3

REPORT INFORMATION
  Report Type: Spontaneous
  Country: US (occurrence: US)
  Receive Date: 20240716
  Receipt Date: 20240716
  Transmission Date: 20241016
  Serious: No
  Sender: NOVO NORDISK
  Company Number: US-NOVOPROD-1170777

PATIENT
  Age: 63 Year
  Sex: Female

DRUGS (2)
  1. OZEMPIC [Suspect]
     Active Substance: SEMAGLUTIDE
     Indication: Blood cholesterol increased
  2. OZEMPIC [Suspect]
     Active Substance: SEMAGLUTIDE
     Indication: Arthritis
     Dosage: UNK
     Route: 058
     Dates: start: 202312

REACTIONS (4)
  - Malaise [Unknown]
  - Nausea [Unknown]
  - Injection site discharge [Unknown]
  - Off label use [Unknown]

NARRATIVE: CASE EVENT DATE: 20231207
